FAERS Safety Report 9278113 (Version 1)
Quarter: 2012Q4

REPORT INFORMATION
  Report Type: Spontaneous
  Country: US (occurrence: None)
  Receive Date: 20121210
  Receipt Date: 20121210
  Transmission Date: 20130627
  Serious: Yes (Hospitalization)
  Sender: FDA-Public Use
  Company Number: FK201203694

PATIENT

DRUGS (4)
  1. FLUOROURACIL [Suspect]
     Indication: COLON CANCER METASTATIC
     Dosage: Cyclical, Intravenous (not otherwise specified)
     Route: 042
  2. LEUCOVORIN CALCIUM [Suspect]
     Dosage: Cyclical, Intravenous (not otherwise specified)
  3. IRINOTECAN (MANUFACTURER UNKNOWN)(IRINOTECAN)(IRINOTECAN) [Suspect]
     Indication: COLON CANCER METASTATIC
     Dosage: Cyclical, Intravenous (not otherwise specified)
     Route: 042
  4. ZALTRAP [Suspect]
     Indication: COLON CANCER METASTATIC
     Dosage: Cyclical, Intravenous (not otherwise specified)
     Route: 042

REACTIONS (1)
  - Colitis [None]
